FAERS Safety Report 5793678-1 (Version None)
Quarter: 2008Q2

REPORT INFORMATION
  Report Type: 
  Country: None (occurrence: None)
  Receive Date: 20080627
  Receipt Date: 20080620
  Transmission Date: 20081010
  Serious: Yes (Other)
  Sender: FDA-Public Use
  Company Number: TW-AMGEN-US289591

PATIENT
  Sex: Female
  Weight: 60 kg

DRUGS (6)
  1. ENBREL [Suspect]
     Indication: RHEUMATOID ARTHRITIS
     Route: 058
     Dates: start: 20061011, end: 20080318
  2. MAGNESIUM OXIDE [Concomitant]
     Indication: CONSTIPATION
     Route: 065
     Dates: start: 20080229, end: 20080425
  3. CIMETIDINE [Concomitant]
     Indication: PEPTIC ULCER
     Dosage: 300 MG TDS
     Route: 065
     Dates: start: 20070109
  4. FOLIC ACID [Concomitant]
     Indication: ANAEMIA
     Route: 065
     Dates: start: 20080229
  5. METHOTREXATE [Concomitant]
     Indication: RHEUMATOID ARTHRITIS
     Dosage: 2.5 MG/ 1.5 TABLETS DAILY
     Route: 065
     Dates: start: 20060303, end: 20080425
  6. FELODIPINE [Concomitant]
     Indication: HYPERTENSION
     Route: 065
     Dates: start: 20070622, end: 20080425

REACTIONS (1)
  - PULMONARY TUBERCULOSIS [None]
